FAERS Safety Report 7799308-1 (Version None)
Quarter: 2011Q4

REPORT INFORMATION
  Report Type: 
  Country: None (occurrence: None)
  Receive Date: 20111006
  Receipt Date: 20110926
  Transmission Date: 20120403
  Serious: Yes (Other)
  Sender: FDA-Public Use
  Company Number: CA-JNJFOC-20110911386

PATIENT
  Sex: Male
  Weight: 66 kg

DRUGS (1)
  1. REMICADE [Suspect]
     Indication: COLITIS
     Route: 042
     Dates: start: 20091010, end: 20110726

REACTIONS (2)
  - WEIGHT DECREASED [None]
  - DISSEMINATED TUBERCULOSIS [None]
